FAERS Safety Report 11099304 (Version 1)
Quarter: 2015Q2

REPORT INFORMATION
  Report Type: Spontaneous
  Country: TR (occurrence: None)
  Receive Date: 20150506
  Receipt Date: 20150506
  Transmission Date: 20150821
  Serious: Yes (Hospitalization)
  Sender: FDA-Public Use
  Company Number: 2015PL000066

PATIENT
  Age: 13 Year
  Sex: Female

DRUGS (5)
  1. PENICILLIN /00000901/ (BENZYLPENICILLIN) [Concomitant]
  2. TRIMETHOPRIM SULFAMETHOXAZOLE (SULFAMETHOXAZOLE TRIMETHOPRIM) [Concomitant]
  3. ALLOPURINOL (ALLOPURINOL) TABLET [Suspect]
     Active Substance: ALLOPURINOL
     Indication: PRODUCT USED FOR UNKNOWN INDICATION
  4. CALCIUM [Concomitant]
     Active Substance: CALCIUM
  5. AMINO ACIDS [Concomitant]
     Active Substance: AMINO ACIDS

REACTIONS (1)
  - Drug reaction with eosinophilia and systemic symptoms [None]
